FAERS Safety Report 8720020 (Version 3)
Quarter: 2013Q1

REPORT INFORMATION
  Report Type: Spontaneous
  Country: US (occurrence: US)
  Receive Date: 20120813
  Receipt Date: 20130109
  Transmission Date: 20140127
  Serious: Yes (Death)
  Sender: FDA-Public Use
  Company Number: US-BAYER-2012-080933

PATIENT
  Age: 59 Year
  Sex: Male
  Weight: 85 kg

DRUGS (25)
  1. TRASYLOL [Suspect]
     Indication: VENTRICULAR ASSIST DEVICE INSERTION
     Dosage: UNK
     Dates: start: 20050421
  2. ACETYLSALICYLIC ACID({=100 MG) [Concomitant]
     Dosage: 81 MG, QD
     Dates: start: 20050415
  3. AMBIEN [Concomitant]
     Dosage: AS NEEDED
     Dates: start: 20050415
  4. ENALAPRIL [Concomitant]
     Dosage: 5 MG, QD
     Route: 048
     Dates: start: 20050415
  5. FLOMAX (MORNIFLUMATE) [Concomitant]
     Dosage: 0.4MG QD
     Dates: start: 20050415
  6. IRON SULFATE [Concomitant]
     Dosage: 325 MG, TID
     Dates: start: 20050415
  7. LASIX [Concomitant]
     Dosage: 40 MG, QD
     Dates: start: 20050415
  8. METHIMAZOLE [Concomitant]
     Dosage: 20 MG, QD
     Dates: start: 20050415
  9. MEXITIL [Concomitant]
     Dosage: 200 MG, TID
     Route: 048
     Dates: start: 20050415
  10. NPH-INSULIN [Concomitant]
     Dosage: UNK
     Dates: start: 20050415
  11. PREDNISONE [Concomitant]
     Dosage: 20 MG, QD
     Dates: end: 200504
  12. REGULAR INSULIN [Concomitant]
     Dosage: UNK
     Dates: start: 20050415
  13. TOPROL XL [Concomitant]
     Dosage: 12.5 MG, QD
     Dates: start: 20050415
  14. XANAX [Concomitant]
     Dosage: 0.25 MG, PRN
     Dates: start: 20050415
  15. HEPARIN [Concomitant]
  16. MANNITOL [Concomitant]
  17. CEFUROXIME [Concomitant]
  18. PROTAMINE [Concomitant]
  19. NITROGLYCERIN [Concomitant]
  20. MILRINONE [Concomitant]
  21. DOBUTAMINE [Concomitant]
  22. EPINEPHRINE [Concomitant]
  23. VASOPRESSIN [Concomitant]
  24. INSULIN [Concomitant]
  25. SODIUM BICARBONATE [Concomitant]

REACTIONS (3)
  - Multi-organ failure [Fatal]
  - Cardiomyopathy [Fatal]
  - Off label use [None]
